FAERS Safety Report 6317717-4 (Version None)
Quarter: 2009Q3

REPORT INFORMATION
  Report Type: 
  Country: None (occurrence: None)
  Receive Date: 20090821
  Receipt Date: 20090819
  Transmission Date: 20100115
  Serious: Yes (Life-Threatening, Hospitalization, Other)
  Sender: FDA-Public Use
  Company Number: FR-ASTRAZENECA-2009SE07715

PATIENT
  Age: 21327 Day
  Sex: Female
  Weight: 69 kg

DRUGS (14)
  1. FOSCAVIR [Suspect]
     Route: 042
     Dates: start: 20090807, end: 20090809
  2. FOSCAVIR [Suspect]
     Route: 042
     Dates: start: 20090810, end: 20090813
  3. NORADRENALINE [Suspect]
     Indication: SEPTIC SHOCK
     Route: 065
     Dates: start: 20090806, end: 20090814
  4. AMIKLIN [Suspect]
     Indication: SEPTIC SHOCK
     Route: 065
     Dates: start: 20090810, end: 20090811
  5. INSULIN [Concomitant]
  6. BENZODIAZEPINE [Concomitant]
  7. MORPHINE [Concomitant]
     Indication: SEDATION
     Dates: start: 20090809
  8. NIMBEX [Concomitant]
  9. TAZOCILLINE [Concomitant]
     Dosage: 4 G X 3
     Dates: start: 20090810, end: 20090817
  10. ROCEPHIN [Concomitant]
  11. LOVENOX [Concomitant]
     Indication: THROMBOSIS
     Dates: start: 20090809
  12. NEXIUM [Concomitant]
  13. LEVOTHYROX [Concomitant]
  14. HYPNOVEL [Concomitant]
     Indication: SEDATION
     Dates: start: 20090809

REACTIONS (1)
  - RENAL FAILURE ACUTE [None]
